FAERS Safety Report 7050913-X (Version None)
Quarter: 2010Q4

REPORT INFORMATION
  Report Type: 
  Country: None (occurrence: None)
  Receive Date: 20101019
  Receipt Date: 20101011
  Transmission Date: 20110411
  Serious: Yes (Hospitalization)
  Sender: FDA-Public Use
  Company Number: US-JNJFOC-20101003561

PATIENT
  Sex: Female
  Weight: 112.49 kg

DRUGS (1)
  1. FENTANYL CITRATE [Suspect]
     Indication: PANCREATITIS
     Route: 062

REACTIONS (2)
  - ABDOMINAL PAIN UPPER [None]
  - GASTROINTESTINAL DISORDER [None]
